FAERS Safety Report 8773035 (Version 3)
Quarter: 2012Q4

REPORT INFORMATION
  Report Type: 
  Country: FI (occurrence: FI)
  Receive Date: 20120907
  Receipt Date: 20120928
  Transmission Date: 20130627
  Serious: Yes (Hospitalization, Other)
  Sender: FDA-Public Use
  Company Number: FI-ABBOTT-12P-055-0973927-00

PATIENT
  Sex: Male
  Weight: 70 kg

DRUGS (8)
  1. HUMIRA 40 MG/ 0.8 ML PRE-FILLED SYRINGE [Suspect]
     Indication: CROHN^S DISEASE
     Dates: start: 201010, end: 20120619
  2. HUMIRA 40 MG/ 0.8 ML PRE-FILLED SYRINGE [Suspect]
  3. PREDNISOLON [Suspect]
     Indication: PRODUCT USED FOR UNKNOWN INDICATION
     Dosage: Occasional
  4. IMUREL [Suspect]
     Indication: PRODUCT USED FOR UNKNOWN INDICATION
  5. AZATHIOPRINE OR 6-MERCAPTOPURINE [Concomitant]
     Indication: PRODUCT USED FOR UNKNOWN INDICATION
  6. STEROID [Concomitant]
     Indication: PRODUCT USED FOR UNKNOWN INDICATION
  7. CORTISONE [Concomitant]
     Indication: ASTHMA
  8. CYTOTOXIC DRUG [Concomitant]

REACTIONS (4)
  - Red blood cell sedimentation rate abnormal [Unknown]
  - Pyrexia [Unknown]
  - Necrotising granulomatous lymphadenitis [Unknown]
  - Tuberculosis [Unknown]
